FAERS Safety Report 14619295 (Version 1)
Quarter: 2018Q1

REPORT INFORMATION
  Report Type: Report from Study
  Country: ES (occurrence: ES)
  Receive Date: 20180309
  Receipt Date: 20180309
  Transmission Date: 20180509
  Serious: Yes (Hospitalization)
  Sender: FDA-Public Use
  Company Number: ES-AUROBINDO-AUR-APL-2018-012724

PATIENT
  Age: 82 Year
  Sex: Female

DRUGS (1)
  1. OLMESARTAN [Suspect]
     Active Substance: OLMESARTAN
     Indication: PRODUCT USED FOR UNKNOWN INDICATION
     Dosage: ()
     Dates: start: 20150701, end: 20160525

REACTIONS (3)
  - Vomiting [Unknown]
  - Diarrhoea [Unknown]
  - Colitis [Unknown]

NARRATIVE: CASE EVENT DATE: 20160401
